FAERS Safety Report 11876568 (Version 3)
Quarter: 2016Q2

REPORT INFORMATION
  Report Type: Spontaneous
  Country: JP (occurrence: JP)
  Receive Date: 20151229
  Receipt Date: 20160609
  Transmission Date: 20160815
  Serious: Yes (Hospitalization, Other)
  Sender: FDA-Public Use
  Company Number: JP-ASTRAZENECA-2015SF29980

PATIENT
  Age: 70 Year
  Sex: Female

DRUGS (1)
  1. ARIMIDEX [Suspect]
     Active Substance: ANASTROZOLE
     Indication: BREAST CANCER FEMALE
     Route: 048
     Dates: start: 201401, end: 201506

REACTIONS (3)
  - Glomerular filtration rate decreased [Recovering/Resolving]
  - Tubulointerstitial nephritis [Unknown]
  - Blood creatinine increased [Recovering/Resolving]

NARRATIVE: CASE EVENT DATE: 201507
